FAERS Safety Report 5005709-7 (Version None)
Quarter: 2006Q2

REPORT INFORMATION
  Report Type: 
  Country: None (occurrence: None)
  Receive Date: 20060515
  Receipt Date: 20060502
  Transmission Date: 20061013
  Serious: Yes (Other)
  Sender: FDA-Public Use
  Company Number: 2006057176

PATIENT
  Age: 74 Year
  Sex: Female

DRUGS (11)
  1. ZITHROMAX [Suspect]
     Indication: BRONCHITIS
     Dosage: 750 MG, ORAL
     Route: 048
     Dates: start: 20060424, end: 20060401
  2. HYCODAN [Concomitant]
  3. DIOVAN [Concomitant]
  4. LIPITOR [Concomitant]
  5. NICODERM [Concomitant]
  6. LOPRESSOR [Concomitant]
  7. ATIVAN [Concomitant]
  8. DIABETA [Concomitant]
  9. GLUCOPHAGE [Concomitant]
  10. LOSEC (OMEPRAZOLE) [Concomitant]
  11. ASAPHEN (ACETYLSALICYLIC ACID) [Concomitant]

REACTIONS (4)
  - AMNESIA [None]
  - DELIRIUM [None]
  - DEMENTIA ALZHEIMER'S TYPE [None]
  - INCORRECT DOSE ADMINISTERED [None]
